FAERS Safety Report 14286580 (Version 4)
Quarter: 2018Q2

REPORT INFORMATION
  Report Type: Spontaneous
  Country: AR (occurrence: AR)
  Receive Date: 20171214
  Receipt Date: 20180510
  Transmission Date: 20180711
  Serious: Yes (Other)
  Sender: FDA-Public Use
  Company Number: AR-PFIZER INC-2017532122

PATIENT
  Age: 65 Year
  Sex: Male

DRUGS (3)
  1. SUTENT [Suspect]
     Active Substance: SUNITINIB MALATE
     Dosage: UNK, CYCLIC (2/1 SCHEDULE, 2 WEEKS AND 1 WEEK OFF)
  2. SUTENT [Suspect]
     Active Substance: SUNITINIB MALATE
     Indication: METASTATIC RENAL CELL CARCINOMA
     Dosage: UNK, CYCLIC (SCHEME 4/2)
     Dates: start: 20170508, end: 201803
  3. SUTENT [Suspect]
     Active Substance: SUNITINIB MALATE
     Dosage: UNK, CYCLIC (7 DAYS AND REST 3 DAYS)

REACTIONS (6)
  - Genital haemorrhage [Recovered/Resolved]
  - Impaired healing [Recovering/Resolving]
  - Second primary malignancy [Not Recovered/Not Resolved]
  - Lymphoma [Not Recovered/Not Resolved]
  - Stomatitis [Recovered/Resolved]
  - Neoplasm progression [Not Recovered/Not Resolved]

NARRATIVE: CASE EVENT DATE: 201710
